FAERS Safety Report 20499758 (Version 2)
Quarter: 2022Q1

REPORT INFORMATION
  Report Type: Spontaneous
  Country: US (occurrence: US)
  Receive Date: 20220222
  Receipt Date: 20220318
  Transmission Date: 20220424
  Serious: No
  Sender: FDA-Public Use
  Company Number: US-UCBSA-2021007445

PATIENT
  Sex: Male

DRUGS (2)
  1. KEPPRA [Suspect]
     Active Substance: LEVETIRACETAM
     Indication: Product used for unknown indication
     Dosage: 1000 MILLIGRAM, 2X/DAY (BID)
     Dates: start: 2019
  2. BRIVIACT [Suspect]
     Active Substance: BRIVARACETAM
     Indication: Product used for unknown indication
     Dosage: 100 MILLIGRAM, 2X/DAY (BID)

REACTIONS (11)
  - Blood potassium decreased [Unknown]
  - Joint swelling [Unknown]
  - Gastrooesophageal reflux disease [Unknown]
  - Irritability [Unknown]
  - Aggression [Unknown]
  - Anxiety [Unknown]
  - Sleep disorder [Unknown]
  - Anger [Unknown]
  - Crying [Unknown]
  - Panic attack [Unknown]
  - Nasal discomfort [Unknown]
